FAERS Safety Report 9136928 (Version 1)
Quarter: 2013Q1

REPORT INFORMATION
  Report Type: Spontaneous
  Country: SE (occurrence: SE)
  Receive Date: 20130304
  Receipt Date: 20130304
  Transmission Date: 20140127
  Serious: Yes (Other)
  Sender: FDA-Public Use
  Company Number: SE-ASTRAZENECA-2013SE13008

PATIENT
  Age: 29706 Day
  Sex: Male

DRUGS (9)
  1. MARCAIN [Suspect]
     Route: 008
     Dates: start: 20120416, end: 20120424
  2. FENTANYL [Suspect]
     Route: 008
     Dates: start: 20120416
  3. ALVEDON [Concomitant]
  4. METOPROLOL [Concomitant]
  5. ENALAPRIL [Concomitant]
  6. SIMVASTATIN [Concomitant]
  7. MINIFOM [Concomitant]
  8. TROMBYL [Concomitant]
  9. FURIX [Concomitant]

REACTIONS (2)
  - Neuralgia [Not Recovered/Not Resolved]
  - Sensory disturbance [Not Recovered/Not Resolved]
